FAERS Safety Report 23884602 (Version 2)
Quarter: 2024Q2

REPORT INFORMATION
  Report Type: Spontaneous
  Country: US (occurrence: US)
  Receive Date: 20240522
  Receipt Date: 20240619
  Transmission Date: 20240716
  Serious: No
  Sender: FDA-Public Use
  Company Number: US-SA-2024SA145445

PATIENT
  Sex: Male

DRUGS (10)
  1. ELOCTATE [Suspect]
     Active Substance: EFMOROCTOCOG ALFA
     Indication: Factor VIII deficiency
     Dosage: 780 U, Q5D
     Route: 042
     Dates: start: 201207
  2. ELOCTATE [Suspect]
     Active Substance: EFMOROCTOCOG ALFA
     Indication: Factor VIII deficiency
     Dosage: 780 U, Q5D
     Route: 042
     Dates: start: 201207
  3. ELOCTATE [Suspect]
     Active Substance: EFMOROCTOCOG ALFA
     Dosage: 780 U, PRN
     Route: 042
     Dates: start: 201207
  4. ELOCTATE [Suspect]
     Active Substance: EFMOROCTOCOG ALFA
     Dosage: 780 U, PRN
     Route: 042
     Dates: start: 201207
  5. ELOCTATE [Suspect]
     Active Substance: EFMOROCTOCOG ALFA
     Dosage: 5000 U, Q5D
     Route: 042
     Dates: start: 201207
  6. ELOCTATE [Suspect]
     Active Substance: EFMOROCTOCOG ALFA
     Dosage: 5000 U, Q5D
     Route: 042
     Dates: start: 201207
  7. ELOCTATE [Suspect]
     Active Substance: EFMOROCTOCOG ALFA
     Dosage: 5000 U, PRN
     Route: 042
     Dates: start: 201207
  8. ELOCTATE [Suspect]
     Active Substance: EFMOROCTOCOG ALFA
     Dosage: 5000 U, PRN
     Route: 042
     Dates: start: 201207
  9. ELOCTATE [Suspect]
     Active Substance: EFMOROCTOCOG ALFA
     Dosage: 5787 (UNIT NOT REPORTED)
     Route: 042
     Dates: start: 20240503, end: 20240503
  10. ELOCTATE [Suspect]
     Active Substance: EFMOROCTOCOG ALFA
     Dosage: 5787 (UNIT NOT REPORTED)
     Route: 042
     Dates: start: 20240503, end: 20240503

REACTIONS (1)
  - Haemorrhage [Recovered/Resolved]
